FAERS Safety Report 9580038 (Version 2)
Quarter: 2013Q4

REPORT INFORMATION
  Report Type: Report from Study
  Country: DE (occurrence: DE)
  Receive Date: 20131002
  Receipt Date: 20131018
  Transmission Date: 20140711
  Serious: Yes (Hospitalization)
  Sender: FDA-Public Use
  Company Number: DE-ROCHE-1282212

PATIENT
  Age: 72 Year
  Sex: Female
  Weight: 55.5 kg

DRUGS (3)
  1. BEVACIZUMAB [Suspect]
     Indication: OVARIAN CANCER
     Dosage: DATE OF LAST DOSE PRIOR TO SAE: 16/SEP/2013
     Route: 042
     Dates: start: 20130228
  2. CARBOPLATIN [Suspect]
     Indication: OVARIAN CANCER
     Dosage: DATE OF LAST DOSE PRIOR TO SAE: 13/JUN/2013
     Route: 042
     Dates: start: 20130228
  3. PACLITAXEL [Suspect]
     Indication: OVARIAN CANCER
     Dosage: DATE OF LAST DOSE PRIOR TO SAE: 13/JUN/2013
     Route: 042
     Dates: start: 20130228

REACTIONS (1)
  - Hydronephrosis [Recovering/Resolving]
